FAERS Safety Report 21245651 (Version 2)
Quarter: 2022Q4

REPORT INFORMATION
  Report Type: Spontaneous
  Country: DE (occurrence: DE)
  Receive Date: 20220824
  Receipt Date: 20221018
  Transmission Date: 20230113
  Serious: No
  Sender: FDA-Public Use
  Company Number: DE-TOLMAR, INC.-22DE035914

PATIENT

DRUGS (1)
  1. ELIGARD [Suspect]
     Active Substance: LEUPROLIDE ACETATE
     Indication: Product used for unknown indication
     Dosage: 22.5 MILLIGRAM, Q 3 MONTH

REACTIONS (3)
  - Wrong technique in product usage process [Unknown]
  - Intercepted product administration error [Unknown]
  - Syringe issue [Unknown]
